FAERS Safety Report 4771168-2 (Version None)
Quarter: 2005Q3

REPORT INFORMATION
  Report Type: 
  Country: None (occurrence: None)
  Receive Date: 20050914
  Receipt Date: 20050831
  Transmission Date: 20060218
  Serious: Yes (Other)
  Sender: FDA-Public Use
  Company Number: USA0508106922

PATIENT
  Age: 65 Year
  Sex: Female

DRUGS (1)
  1. ALIMTA [Suspect]
     Indication: NON-SMALL CELL LUNG CANCER
     Dates: start: 20050801, end: 20050801

REACTIONS (2)
  - BLOOD CREATININE INCREASED [None]
  - NEPHROPATHY TOXIC [None]
